FAERS Safety Report 6251741-5 (Version None)
Quarter: 2009Q2

REPORT INFORMATION
  Report Type: 
  Country: None (occurrence: None)
  Receive Date: 20090630
  Receipt Date: 20090619
  Transmission Date: 20091009
  Serious: Yes (Other)
  Sender: FDA-Public Use
  Company Number: PHHY2009AU24998

PATIENT
  Sex: Female

DRUGS (5)
  1. CLOZARIL [Suspect]
     Dosage: UNK
     Route: 048
     Dates: start: 19931115
  2. CLOZARIL [Suspect]
     Dosage: 350
     Route: 048
  3. CLOZARIL [Suspect]
     Dosage: 300
     Route: 048
  4. CLOZARIL [Suspect]
     Dosage: 250
     Route: 048
  5. CLOZARIL [Suspect]
     Dosage: 200
     Route: 048
     Dates: end: 20090618

REACTIONS (3)
  - CHRONIC OBSTRUCTIVE PULMONARY DISEASE [None]
  - NEUTROPHIL COUNT DECREASED [None]
  - WHITE BLOOD CELL COUNT DECREASED [None]
